FAERS Safety Report 8829357 (Version 1)
Quarter: 2012Q4

REPORT INFORMATION
  Report Type: Spontaneous
  Country: US (occurrence: None)
  Receive Date: 20121005
  Receipt Date: 20121005
  Transmission Date: 20130627
  Serious: Yes (Life-Threatening, Other)
  Sender: FDA-Public Use
  Company Number: None

PATIENT
  Age: 28 Year
  Sex: Male
  Weight: 54.89 kg

DRUGS (2)
  1. METHADONE [Suspect]
     Indication: SUBSTANCE ABUSE
     Dosage: 30-65 Daily
  2. SUBOXONE [Suspect]
     Dosage: 3 pills Daily

REACTIONS (5)
  - Drug abuse [None]
  - Drug hypersensitivity [None]
  - Reading disorder [None]
  - Dysgraphia [None]
  - Learning disorder [None]
